FAERS Safety Report 15247178 (Version 2)
Quarter: 2018Q3

REPORT INFORMATION
  Report Type: Spontaneous
  Country: LK (occurrence: LK)
  Receive Date: 20180807
  Receipt Date: 20180904
  Transmission Date: 20181010
  Serious: Yes (Other)
  Sender: FDA-Public Use
  Company Number: LK-SUN PHARMACEUTICAL INDUSTRIES LTD-2018R1-180596

PATIENT
  Sex: Female
  Weight: 56 kg

DRUGS (2)
  1. LUPRIDE DEPOT [Suspect]
     Active Substance: LEUPROLIDE ACETATE
     Indication: ENDOMETRIOSIS
     Dosage: UNK
     Route: 065
  2. LUPRIDE DEPOT [Suspect]
     Active Substance: LEUPROLIDE ACETATE
     Dosage: UNK (3.75MG EVERY 28 DAYS)
     Route: 030

REACTIONS (2)
  - Metrorrhagia [Unknown]
  - Exposure during pregnancy [Unknown]
